FAERS Safety Report 17432434 (Version 2)
Quarter: 2020Q1

REPORT INFORMATION
  Report Type: Report from Study
  Country: US (occurrence: US)
  Receive Date: 20200218
  Receipt Date: 20200316
  Transmission Date: 20200409
  Serious: Yes (Hospitalization, Other)
  Sender: FDA-Public Use
  Company Number: US-ACTELION-A-NJ2020-200261

PATIENT
  Age: 54 Year
  Sex: Male
  Weight: 81.63 kg

DRUGS (6)
  1. AMLODIPINE [Concomitant]
     Active Substance: AMLODIPINE BESYLATE
  2. UPTRAVI [Suspect]
     Active Substance: SELEXIPAG
     Indication: PULMONARY ARTERIAL HYPERTENSION
     Dosage: 800 MCG
     Route: 048
  3. UPTRAVI [Suspect]
     Active Substance: SELEXIPAG
     Dosage: 600 UNK
     Route: 048
  4. UPTRAVI [Suspect]
     Active Substance: SELEXIPAG
     Dosage: 600 MCG, BID
     Route: 048
  5. UPTRAVI [Suspect]
     Active Substance: SELEXIPAG
     Dosage: 200 MCG, BID
     Route: 048
  6. WARFARIN [Concomitant]
     Active Substance: WARFARIN

REACTIONS (8)
  - Fall [Unknown]
  - Embolism [Unknown]
  - Skull fracture [Unknown]
  - Surgery [Unknown]
  - Cerebral haemorrhage [Unknown]
  - Dyspnoea [Unknown]
  - Tympanic membrane perforation [Unknown]
  - Headache [Unknown]

NARRATIVE: CASE EVENT DATE: 202002
